FAERS Safety Report 23980552 (Version 1)
Quarter: 2024Q2

REPORT INFORMATION
  Report Type: Spontaneous
  Country: JP (occurrence: JP)
  Receive Date: 20240617
  Receipt Date: 20240617
  Transmission Date: 20240716
  Serious: No
  Sender: FDA-Public Use
  Company Number: JP-ALKEM LABORATORIES LIMITED-JP-ALKEM-2024-02063

PATIENT
  Age: 73 Year
  Sex: Female

DRUGS (6)
  1. RABEPRAZOLE [Suspect]
     Active Substance: RABEPRAZOLE
     Indication: Eosinophilic oesophagitis
     Dosage: UNK, QD (DAILY)
     Route: 065
  2. PREDNISOLONE [Suspect]
     Active Substance: PREDNISOLONE
     Indication: Eosinophilic oesophagitis
     Dosage: 5 MG/DAY
     Route: 065
  3. PREDNISOLONE [Suspect]
     Active Substance: PREDNISOLONE
     Dosage: 20 MG/DAY (INCREASED)
     Route: 065
  4. PREDNISOLONE [Suspect]
     Active Substance: PREDNISOLONE
     Dosage: 15 MG/DAY (TAPERING)
     Route: 065
  5. BUDESONIDE [Suspect]
     Active Substance: BUDESONIDE
     Indication: Eosinophilic oesophagitis
     Dosage: 2 MG/DAY (UNDILUTED)
     Route: 048
  6. BUDESONIDE [Suspect]
     Active Substance: BUDESONIDE
     Dosage: UNK (COMBINATION)
     Route: 048

REACTIONS (1)
  - Drug ineffective [Unknown]
